FAERS Safety Report 9929133 (Version 1)
Quarter: 2014Q1

REPORT INFORMATION
  Report Type: Spontaneous
  Country: TR (occurrence: None)
  Receive Date: 20140225
  Receipt Date: 20140225
  Transmission Date: 20141002
  Serious: Yes (Hospitalization)
  Sender: FDA-Public Use
  Company Number: TR-INDICUS PHARMA-000236

PATIENT
  Age: 34 Year
  Sex: Male

DRUGS (1)
  1. METFORMIN HYDROCHLORIDE (METFORMIN HYDROCHLORIDE) [Suspect]

REACTIONS (6)
  - Suicide attempt [None]
  - Overdose [None]
  - Lactic acidosis [None]
  - Hypoglycaemia [None]
  - Renal failure acute [None]
  - Exposure via ingestion [None]
